FAERS Safety Report 16151761 (Version 1)
Quarter: 2019Q2

REPORT INFORMATION
  Report Type: Report from Study
  Country: US (occurrence: US)
  Receive Date: 20190403
  Receipt Date: 20190403
  Transmission Date: 20190711
  Serious: Yes (Hospitalization, Other)
  Sender: FDA-Public Use
  Company Number: US-BRISTOL-MYERS SQUIBB COMPANY-BMS-2019-003454

PATIENT
  Age: 88 Year
  Sex: Female
  Weight: 62.9 kg

DRUGS (2)
  1. NIVOLUMAB [Suspect]
     Active Substance: NIVOLUMAB
     Indication: ANAPLASTIC THYROID CANCER
     Dosage: UNK, Q2WK
     Route: 042
     Dates: start: 20171228
  2. IPILIMUMAB [Suspect]
     Active Substance: IPILIMUMAB
     Indication: ANAPLASTIC THYROID CANCER
     Dosage: UNK, Q6WK
     Route: 042
     Dates: start: 20171214

REACTIONS (2)
  - Lung infection [Recovered/Resolved]
  - Pneumonia aspiration [Unknown]

NARRATIVE: CASE EVENT DATE: 20190104
